FAERS Safety Report 8528897-4 (Version None)
Quarter: 2012Q3

REPORT INFORMATION
  Report Type: 
  Country: None (occurrence: None)
  Receive Date: 20120723
  Receipt Date: 20120719
  Transmission Date: 20120928
  Serious: No
  Sender: FDA-Public Use
  Company Number: US-PFIZER INC-2012175730

PATIENT
  Sex: Female

DRUGS (2)
  1. PRISTIQ [Suspect]
     Indication: DEPRESSION
     Dosage: 150 MG, DAILY
  2. PRISTIQ [Suspect]
     Dosage: 100 MG, DAILY

REACTIONS (1)
  - FEELING JITTERY [None]
